FAERS Safety Report 5944260-4 (Version None)
Quarter: 2008Q4

REPORT INFORMATION
  Report Type: 
  Country: None (occurrence: None)
  Receive Date: 20081104
  Receipt Date: 20081024
  Transmission Date: 20090506
  Serious: Yes (Hospitalization)
  Sender: FDA-Public Use
  Company Number: 100#08#2008-05463

PATIENT
  Age: 48 Year
  Sex: Female

DRUGS (5)
  1. METHOTREXATE [Suspect]
     Indication: ACUTE LYMPHOCYTIC LEUKAEMIA
     Dosage: 500 MG/M2, INTRAVENOUS (NOT OTHERWISE SPECIFIED), DAYS 4 AND 11
     Route: 042
  2. IMATINIB MESYLATE [Suspect]
     Indication: ACUTE LYMPHOCYTIC LEUKAEMIA
     Dosage: 600 MG ONCE, DAILY, DAY 13 - DAYS 1 AND 8
  3. CYTARABINE [Concomitant]
  4. ETOPOSIDE [Concomitant]
  5. LEUCOVORIN CALCIUM [Concomitant]

REACTIONS (7)
  - ASCITES [None]
  - DRUG TOXICITY [None]
  - OEDEMA PERIPHERAL [None]
  - PLEURAL EFFUSION [None]
  - RENAL IMPAIRMENT [None]
  - STOMATITIS [None]
  - WEIGHT INCREASED [None]
